FAERS Safety Report 14365423 (Version 3)
Quarter: 2018Q2

REPORT INFORMATION
  Report Type: Spontaneous
  Country: US (occurrence: US)
  Receive Date: 20180108
  Receipt Date: 20180410
  Transmission Date: 20180711
  Serious: No
  Sender: FDA-Public Use
  Company Number: US-BIOGEN-2017BI00489833

PATIENT
  Age: 27 Year
  Sex: Female

DRUGS (2)
  1. TECFIDERA [Suspect]
     Active Substance: DIMETHYL FUMARATE
     Dosage: STARTING DOSE
     Route: 048
     Dates: start: 20171126, end: 20171126
  2. TECFIDERA [Suspect]
     Active Substance: DIMETHYL FUMARATE
     Indication: MULTIPLE SCLEROSIS
     Route: 065
     Dates: start: 20171122, end: 20171126

REACTIONS (35)
  - Hypoaesthesia [Recovered/Resolved]
  - Urinary incontinence [Unknown]
  - Asthenia [Unknown]
  - Abdominal pain [Unknown]
  - Skin tightness [Not Recovered/Not Resolved]
  - Depression [Unknown]
  - Menstruation irregular [Unknown]
  - Dizziness [Unknown]
  - Dysphagia [Unknown]
  - Nephrolithiasis [Unknown]
  - Back pain [Unknown]
  - Central nervous system lesion [Not Recovered/Not Resolved]
  - Headache [Unknown]
  - Constipation [Unknown]
  - Pain in extremity [Unknown]
  - Thirst [Unknown]
  - Dyspepsia [Unknown]
  - Nausea [Unknown]
  - Pallor [Recovered/Resolved]
  - Weight decreased [Unknown]
  - Diplopia [Unknown]
  - Sneezing [Unknown]
  - Hypersensitivity [Recovered/Resolved]
  - Diarrhoea [Unknown]
  - Pruritus [Unknown]
  - Paraesthesia [Recovered/Resolved]
  - Fatigue [Unknown]
  - Anxiety [Unknown]
  - Hypertension [Unknown]
  - Dyspnoea [Unknown]
  - Neck pain [Unknown]
  - Balance disorder [Unknown]
  - Increased tendency to bruise [Unknown]
  - Arthralgia [Unknown]
  - Rash [Unknown]

NARRATIVE: CASE EVENT DATE: 20171126
